FAERS Safety Report 5748805-9 (Version None)
Quarter: 2008Q2

REPORT INFORMATION
  Report Type: 
  Country: None (occurrence: None)
  Receive Date: 20080521
  Receipt Date: 20080508
  Transmission Date: 20081010
  Serious: Yes (Death, Other)
  Sender: FDA-Public Use
  Company Number: 2008US000655

PATIENT
  Age: 51 Year
  Sex: Male

DRUGS (12)
  1. AMBISOME [Suspect]
     Indication: BRONCHOPULMONARY ASPERGILLOSIS
     Dosage: 150 MG, UID/QD, IV NOS
     Route: 042
     Dates: start: 20071011, end: 20071014
  2. OMEGACIN(BIAPENEM) [Suspect]
     Indication: DRUG USE FOR UNKNOWN INDICATION
     Dosage: 1.2 G, UID/QD, IV NOS
     Route: 042
     Dates: start: 20071005, end: 20071019
  3. AMIKACIN SULFATE [Suspect]
     Indication: DRUG USE FOR UNKNOWN INDICATION
     Dosage: 200 MG, UID/QD, IV NOS
     Route: 042
     Dates: start: 20071005, end: 20071014
  4. PROPOFOL [Concomitant]
  5. MIDAZOLAM HYDROCHLORIDE [Concomitant]
  6. LEPETAN (BUPRENORPHINE HYDROCHLORIDE) [Concomitant]
  7. NEUTROGIN (LENOGRASTIM) [Concomitant]
  8. VFEND [Concomitant]
  9. MAXIPIME [Concomitant]
  10. VANCOMYCIN HYDROCHLORIDE [Concomitant]
  11. PLATELETS [Concomitant]
  12. NEUPOGEN [Concomitant]

REACTIONS (14)
  - ALANINE AMINOTRANSFERASE INCREASED [None]
  - BLOOD BILIRUBIN INCREASED [None]
  - BLOOD CREATININE INCREASED [None]
  - BLOOD POTASSIUM DECREASED [None]
  - BLOOD TRIGLYCERIDES INCREASED [None]
  - BLOOD UREA INCREASED [None]
  - C-REACTIVE PROTEIN INCREASED [None]
  - HAEMATOCRIT DECREASED [None]
  - HAEMOGLOBIN DECREASED [None]
  - HYPERKALAEMIA [None]
  - PLATELET COUNT DECREASED [None]
  - RED BLOOD CELL COUNT DECREASED [None]
  - RENAL DISORDER [None]
  - WHITE BLOOD CELL COUNT DECREASED [None]
